FAERS Safety Report 23692314 (Version 4)
Quarter: 2024Q2

REPORT INFORMATION
  Report Type: Spontaneous
  Country: JP (occurrence: JP)
  Receive Date: 20240401
  Receipt Date: 20240424
  Transmission Date: 20240715
  Serious: Yes (Hospitalization, Other)
  Sender: FDA-Public Use
  Company Number: JP-MLMSERVICE-20240320-4896070-1

PATIENT
  Age: 69 Year
  Sex: Male

DRUGS (1)
  1. GEMCITABINE HYDROCHLORIDE [Suspect]
     Active Substance: GEMCITABINE HYDROCHLORIDE
     Indication: Cholangiocarcinoma
     Dosage: 600 MG/M2, CYCLIC; EVERY OTHER WEEK; FOR 13 MONTHS

REACTIONS (2)
  - Eosinophilic fasciitis [Recovered/Resolved]
  - Scleroderma [Recovered/Resolved]
